FAERS Safety Report 13586123 (Version 3)
Quarter: 2017Q3

REPORT INFORMATION
  Report Type: Spontaneous
  Country: DE (occurrence: DE)
  Receive Date: 20170526
  Receipt Date: 20170726
  Transmission Date: 20171127
  Serious: Yes (Other)
  Sender: FDA-Public Use
  Company Number: DE-AMGEN-DEUSP2017077870

PATIENT
  Age: 77 Year
  Sex: Female
  Weight: 80 kg

DRUGS (4)
  1. CLINDA [Suspect]
     Active Substance: CLINDAMYCIN HYDROCHLORIDE
     Indication: PERI-IMPLANTITIS
     Dosage: 60 MG, BID
     Route: 065
     Dates: start: 20170512, end: 20170518
  2. PROLIA [Suspect]
     Active Substance: DENOSUMAB
     Indication: OSTEOPOROSIS POSTMENOPAUSAL
     Dosage: 60 MG, QMO
     Route: 065
     Dates: start: 20110203, end: 20170130
  3. AMOXI [Suspect]
     Active Substance: AMOXICILLIN
     Indication: PERI-IMPLANTITIS
     Dosage: 1000 MG, BID
     Route: 065
     Dates: start: 20170424, end: 20170427
  4. UNACID [Suspect]
     Active Substance: AMPICILLIN SODIUM\SULBACTAM SODIUM
     Indication: PERI-IMPLANTITIS
     Dosage: 375 MG, QID
     Route: 065
     Dates: start: 20170219, end: 20170224

REACTIONS (18)
  - Skin irritation [Unknown]
  - Vestibular disorder [Unknown]
  - Tongue erythema [Unknown]
  - Incontinence [Unknown]
  - Peri-implantitis [Recovering/Resolving]
  - Fistula [Recovering/Resolving]
  - Wound complication [Not Recovered/Not Resolved]
  - Sleep disorder [Unknown]
  - Arthralgia [Not Recovered/Not Resolved]
  - Memory impairment [Unknown]
  - Dry mouth [Unknown]
  - Tongue discomfort [Unknown]
  - Pain in extremity [Recovering/Resolving]
  - Osteonecrosis of jaw [Not Recovered/Not Resolved]
  - Dental implantation [Recovering/Resolving]
  - Fall [Unknown]
  - Hypoaesthesia [Recovering/Resolving]
  - Tooth disorder [Unknown]

NARRATIVE: CASE EVENT DATE: 2012
